FAERS Safety Report 4761993-6 (Version None)
Quarter: 2005Q3

REPORT INFORMATION
  Report Type: 
  Country: None (occurrence: None)
  Receive Date: 20050831
  Receipt Date: 20050728
  Transmission Date: 20060218
  Serious: No
  Sender: FDA-Public Use
  Company Number: PHEH2005US08363

PATIENT
  Age: 82 Year
  Sex: Male

DRUGS (2)
  1. ENABLEX [Suspect]
     Indication: HYPERTONIC BLADDER
     Dosage: 15 MG, QD,
     Dates: start: 20050701
  2. UROXATRAL [Concomitant]

REACTIONS (2)
  - ABNORMAL FAECES [None]
  - CONSTIPATION [None]
